FAERS Safety Report 6916904-1 (Version None)
Quarter: 2010Q3

REPORT INFORMATION
  Report Type: 
  Country: None (occurrence: None)
  Receive Date: 20100810
  Receipt Date: 20100805
  Transmission Date: 20110219
  Serious: Yes (Other)
  Sender: FDA-Public Use
  Company Number: SE-JNJFOC-20100801739

PATIENT
  Age: 50 Year
  Sex: Male

DRUGS (4)
  1. IMODIUM [Suspect]
     Indication: DIARRHOEA
     Dosage: 2 TABLETS 3 TIMES DAILY FOR 3 DAYS
     Route: 048
  2. FLAGYL [Concomitant]
     Indication: ANTIBIOTIC THERAPY
     Route: 048
  3. CIPROFLOXACIN [Concomitant]
     Indication: ANTIBIOTIC THERAPY
     Route: 048
  4. PROBIOTICS [Concomitant]
     Indication: PROPHYLAXIS
     Route: 065

REACTIONS (3)
  - FLUID RETENTION [None]
  - OVERDOSE [None]
  - WEIGHT INCREASED [None]
